FAERS Safety Report 6412278-3 (Version None)
Quarter: 2009Q4

REPORT INFORMATION
  Report Type: 
  Country: None (occurrence: None)
  Receive Date: 20091023
  Receipt Date: 20091016
  Transmission Date: 20100525
  Serious: Yes (Disabling)
  Sender: FDA-Public Use
  Company Number: FR-PFIZER INC-2009284112

PATIENT
  Age: 49 Year

DRUGS (3)
  1. TAHOR [Suspect]
     Indication: SUBCLAVIAN ARTERY STENOSIS
  2. DI-ANTALVIC [Concomitant]
     Indication: PAIN
  3. OMEPRAZOLE [Concomitant]

REACTIONS (3)
  - BLOOD CREATINE PHOSPHOKINASE INCREASED [None]
  - GAIT DISTURBANCE [None]
  - MYALGIA [None]
